FAERS Safety Report 8443917-3 (Version None)
Quarter: 2012Q2

REPORT INFORMATION
  Report Type: 
  Country: None (occurrence: None)
  Receive Date: 20120618
  Receipt Date: 20120605
  Transmission Date: 20120825
  Serious: Yes (Hospitalization)
  Sender: FDA-Public Use
  Company Number: US-BAYER-2012-029191

PATIENT
  Age: 25 Year
  Sex: Female
  Weight: 104.31 kg

DRUGS (10)
  1. DROSPIRENONE AND ETHINYL ESTRADIOL [Suspect]
  2. NITROFURANTOIN [Concomitant]
     Dosage: 100 MG, BID
  3. ALBUTEROL [Concomitant]
     Dosage: 2 PUFF(S), AS NEEDED FOUR TIMES DAILY
  4. ACETAMINOPHEN [Concomitant]
     Dosage: 325 MG, TWO TABLETS PRN
  5. YASMIN [Suspect]
  6. IBUPROFEN [Concomitant]
     Dosage: 200 MG, PRN THREE TABLETS
  7. HYDROCODONE BITARTRATE AND ACETAMINOPHEN [Concomitant]
  8. ANTIVERT [Concomitant]
  9. PREDNISONE [Concomitant]
     Dosage: 20 MG, BID
  10. LIDOCAINE HYDROCHLORIDE [Concomitant]
     Dosage: 2 %, 10 ML EVERY 4 TO 6 HOURS AS NEEDED
     Route: 048

REACTIONS (1)
  - PULMONARY EMBOLISM [None]
